FAERS Safety Report 5489421-6 (Version None)
Quarter: 2007Q4

REPORT INFORMATION
  Report Type: 
  Country: None (occurrence: None)
  Receive Date: 20071018
  Receipt Date: 20071009
  Transmission Date: 20080405
  Serious: Yes (Hospitalization)
  Sender: FDA-Public Use
  Company Number: FR-PURDUE-GBR_2007_0003348

PATIENT
  Age: 49 Year
  Sex: Male

DRUGS (19)
  1. OXYCONTIN [Suspect]
     Indication: METASTATIC PAIN
     Dosage: 80 MG, DAILY
     Route: 048
     Dates: start: 20070701
  2. OXYCONTIN [Suspect]
     Dosage: 80 MG, BID
     Route: 048
     Dates: start: 20070822
  3. OXYNORM CAPSULES 20 MG [Suspect]
     Indication: METASTATIC PAIN
     Dosage: 20 MG, PRN
     Route: 048
     Dates: start: 20070701
  4. TRANXENE [Suspect]
     Indication: METASTATIC PAIN
     Dosage: 1 DF, DAILY
     Route: 048
     Dates: end: 20070829
  5. TAXOL [Concomitant]
     Indication: DRUG USE FOR UNKNOWN INDICATION
     Route: 065
     Dates: start: 20070710
  6. TAXOL [Concomitant]
     Dosage: 175 MG/M2 FOR 30 MINUTES
     Route: 065
     Dates: start: 20070828, end: 20070828
  7. SOLU-MEDROL [Concomitant]
     Indication: PREMEDICATION
     Route: 065
  8. POLARAMINE [Concomitant]
     Indication: PREMEDICATION
     Route: 065
  9. CIMETIDINE [Concomitant]
     Indication: PREMEDICATION
     Route: 065
  10. ZOFRAN [Concomitant]
     Indication: PREMEDICATION
     Dosage: 8 MG, UNK
     Route: 042
  11. CORTANCYL [Concomitant]
     Indication: DRUG USE FOR UNKNOWN INDICATION
     Route: 065
  12. PARACETAMOL [Concomitant]
     Indication: DRUG USE FOR UNKNOWN INDICATION
     Route: 065
  13. LYRICA [Concomitant]
     Indication: DRUG USE FOR UNKNOWN INDICATION
     Dosage: 2 DF, DAILY
     Route: 065
  14. INIPOMP [Concomitant]
     Indication: DRUG USE FOR UNKNOWN INDICATION
     Route: 065
  15. DUPHALAC [Concomitant]
     Indication: DRUG USE FOR UNKNOWN INDICATION
     Route: 065
  16. CARBOPLATIN [Concomitant]
     Indication: DRUG USE FOR UNKNOWN INDICATION
     Route: 065
     Dates: start: 20070731
  17. CARBOPLATIN [Concomitant]
     Route: 065
     Dates: start: 20070710
  18. CARBOPLATIN [Concomitant]
     Route: 065
     Dates: start: 20070828
  19. TRANXENE [Concomitant]
     Indication: DRUG USE FOR UNKNOWN INDICATION
     Route: 065

REACTIONS (6)
  - COMA [None]
  - CONFUSIONAL STATE [None]
  - DISORIENTATION [None]
  - EXTENSOR PLANTAR RESPONSE [None]
  - HYPOTENSION [None]
  - RESPIRATORY DEPRESSION [None]
